FAERS Safety Report 4863088-X (Version None)
Quarter: 2005Q4

REPORT INFORMATION
  Report Type: 
  Country: None (occurrence: None)
  Receive Date: 20051221
  Receipt Date: 20050926
  Transmission Date: 20060501
  Serious: Yes (Life-Threatening, Hospitalization, Other)
  Sender: FDA-Public Use
  Company Number: US-MERCK-0509USA03753

PATIENT
  Age: 74 Year
  Sex: Female
  Weight: 58 kg

DRUGS (6)
  1. VYTORIN [Suspect]
     Indication: LOW DENSITY LIPOPROTEIN INCREASED
     Route: 048
     Dates: start: 20050517, end: 20050804
  2. VYTORIN [Suspect]
     Indication: DYSLIPIDAEMIA
     Route: 048
     Dates: start: 20050517, end: 20050804
  3. ZOCOR [Concomitant]
     Route: 048
     Dates: start: 20000101, end: 20050501
  4. ZOCOR [Concomitant]
     Route: 048
     Dates: start: 20050801
  5. ACTONEL [Concomitant]
     Indication: OSTEOPENIA
     Route: 048
     Dates: start: 20031001
  6. CAPTOPRIL [Concomitant]
     Indication: HYPERTENSION
     Route: 048
     Dates: start: 20031001

REACTIONS (8)
  - BLOOD BILIRUBIN INCREASED [None]
  - BOWEL SOUNDS ABNORMAL [None]
  - CHOLECYSTITIS ACUTE [None]
  - CHOLELITHIASIS [None]
  - FLATULENCE [None]
  - HEPATITIS [None]
  - NEUTROPHIL COUNT INCREASED [None]
  - WHITE BLOOD CELL COUNT INCREASED [None]
